FAERS Safety Report 4344429-9 (Version None)
Quarter: 2004Q2

REPORT INFORMATION
  Report Type: 
  Country: None (occurrence: None)
  Receive Date: 20040419
  Receipt Date: 20040406
  Transmission Date: 20050107
  Serious: Yes (Disabling)
  Sender: FDA-Public Use
  Company Number: GB-JNJFOC-20040401485

PATIENT
  Age: 41 Year
  Sex: Female

DRUGS (5)
  1. TRAMADOL HCL [Suspect]
     Indication: SCIATICA
     Dosage: 100 MG, 4 IN 1 DAY, ORAL
     Route: 048
     Dates: start: 20031201, end: 20031201
  2. OMEPRAZOLE [Concomitant]
  3. FLUOXETINE [Concomitant]
  4. PARAMAX (PARAMAX) [Concomitant]
  5. NARATRIPTAN (NARATRIPTAN) [Concomitant]

REACTIONS (2)
  - DRUG WITHDRAWAL SYNDROME [None]
  - HYPOMANIA [None]
